FAERS Safety Report 9333625 (Version 1)
Quarter: 2013Q2

REPORT INFORMATION
  Report Type: Spontaneous
  Country: US (occurrence: US)
  Receive Date: 20130606
  Receipt Date: 20130606
  Transmission Date: 20140414
  Serious: No
  Sender: FDA-Public Use
  Company Number: US-AMGEN-USASP2012082097

PATIENT
  Age: 63 Year
  Sex: Female

DRUGS (8)
  1. PROLIA [Suspect]
     Indication: OSTEOPOROSIS POSTMENOPAUSAL
     Dosage: UNK
     Dates: start: 201205
  2. LEVOTHYROXINE [Concomitant]
     Dosage: 75 MUG, UNK
  3. LIPITOR [Concomitant]
     Dosage: 20 MG, QOD
  4. ATENOLOL [Concomitant]
     Dosage: 25 MG, UNK
  5. FLAXSEED OIL [Concomitant]
  6. CALCIUM [Concomitant]
  7. VITAMIN D                          /00107901/ [Concomitant]
  8. MAGNESIUM CITRATE [Concomitant]

REACTIONS (2)
  - Platelet aggregation [Unknown]
  - Platelet count abnormal [Unknown]
